FAERS Safety Report 15431884 (Version 2)
Quarter: 2018Q4

REPORT INFORMATION
  Report Type: Spontaneous
  Country: PT (occurrence: PT)
  Receive Date: 20180926
  Receipt Date: 20181027
  Transmission Date: 20190204
  Serious: Yes (Hospitalization, Disabling)
  Sender: FDA-Public Use
  Company Number: PT-ABBVIE-18K-130-2497376-00

PATIENT
  Age: 34 Year
  Sex: Female

DRUGS (1)
  1. HUMIRA [Suspect]
     Active Substance: ADALIMUMAB
     Indication: CROHN^S DISEASE
     Route: 058
     Dates: start: 20180625, end: 20180918

REACTIONS (2)
  - Administration site reaction [Recovered/Resolved]
  - Administration site joint movement impairment [Recovered/Resolved]

NARRATIVE: CASE EVENT DATE: 20180918
